FAERS Safety Report 8744513 (Version 3)
Quarter: 2012Q4

REPORT INFORMATION
  Report Type: 
  Country: US (occurrence: US)
  Receive Date: 20120825
  Receipt Date: 20121017
  Transmission Date: 20130627
  Serious: No
  Sender: FDA-Public Use
  Company Number: US-009507513-1208USA009405

PATIENT
  Age: 24 None
  Sex: Female

DRUGS (1)
  1. IMPLANON [Suspect]
     Indication: CONTRACEPTION
     Dosage: UNK
     Route: 059
     Dates: start: 2011, end: 20120830

REACTIONS (3)
  - Implant site pain [Unknown]
  - Device dislocation [Unknown]
  - Medical device complication [Unknown]
